FAERS Safety Report 7976256-5 (Version None)
Quarter: 2011Q4

REPORT INFORMATION
  Report Type: 
  Country: None (occurrence: None)
  Receive Date: 20111213
  Receipt Date: 20111017
  Transmission Date: 20120403
  Serious: No
  Sender: FDA-Public Use
  Company Number: US-AMGEN-USASP2011053627

PATIENT
  Sex: Female

DRUGS (1)
  1. ENBREL [Suspect]
     Dosage: UNK
     Dates: start: 20111015

REACTIONS (3)
  - DIZZINESS [None]
  - DIARRHOEA [None]
  - NAUSEA [None]
